FAERS Safety Report 16707086 (Version 1)
Quarter: 2019Q3

REPORT INFORMATION
  Report Type: Spontaneous
  Country: US (occurrence: US)
  Receive Date: 20190815
  Receipt Date: 20190815
  Transmission Date: 20191004
  Serious: No
  Sender: FDA-Public Use
  Company Number: US-THERAPEUTICSMD-2019TMD02235

PATIENT
  Sex: Female

DRUGS (1)
  1. BIJUVA [Suspect]
     Active Substance: ESTRADIOL\PROGESTERONE
     Indication: HORMONE REPLACEMENT THERAPY

REACTIONS (4)
  - Abdominal distension [Unknown]
  - Drug intolerance [Unknown]
  - Unevaluable event [Unknown]
  - Off label use [Unknown]
